FAERS Safety Report 8773506 (Version 1)
Quarter: 2012Q4

REPORT INFORMATION
  Report Type: 
  Country: US (occurrence: US)
  Receive Date: 20120907
  Receipt Date: 20120907
  Transmission Date: 20130627
  Serious: Yes (Hospitalization, Other)
  Sender: FDA-Public Use
  Company Number: US-CELGENEUS-163-21880-12071527

PATIENT
  Age: 78 Year
  Sex: Female

DRUGS (26)
  1. REVLIMID [Suspect]
     Indication: MULTIPLE MYELOMA
     Dosage: 10 Milligram
     Route: 048
     Dates: start: 20120321, end: 2012
  2. REVLIMID [Suspect]
     Dosage: 10 Milligram
     Route: 048
     Dates: start: 20120611, end: 20120712
  3. ARANESP [Concomitant]
     Indication: DRUG USE FOR UNKNOWN INDICATION
     Route: 065
     Dates: start: 20120430, end: 20120514
  4. ZOMETA [Concomitant]
     Indication: DRUG USE FOR UNKNOWN INDICATION
     Route: 065
     Dates: start: 20120605
  5. ZOMETA [Concomitant]
     Route: 065
     Dates: start: 20120625
  6. ZOMETA [Concomitant]
     Route: 065
     Dates: start: 20120716
  7. CRESTOR [Concomitant]
     Indication: DRUG USE FOR UNKNOWN INDICATION
     Dosage: 10 Milligram
     Route: 048
  8. NIASPAN [Concomitant]
     Indication: DRUG USE FOR UNKNOWN INDICATION
     Dosage: 1000 Milligram
     Route: 048
  9. ZETIA [Concomitant]
     Indication: DRUG USE FOR UNKNOWN INDICATION
     Dosage: 10 Milligram
     Route: 048
  10. SYNTHROID [Concomitant]
     Indication: DRUG USE FOR UNKNOWN INDICATION
     Dosage: 75 Microgram
     Route: 048
  11. MIACALCIN [Concomitant]
     Indication: DRUG USE FOR UNKNOWN INDICATION
     Dosage: 200
     Route: 045
  12. MIRALAX [Concomitant]
     Indication: DRUG USE FOR UNKNOWN INDICATION
     Dosage: 1 Tablet
     Route: 048
  13. LASIX [Concomitant]
     Indication: DRUG USE FOR UNKNOWN INDICATION
     Dosage: 20 Milligram
     Route: 048
  14. COUMADIN [Concomitant]
     Indication: DRUG USE FOR UNKNOWN INDICATION
     Dosage: 2 Milligram
     Route: 048
  15. ADULT ASPIRIN [Concomitant]
     Indication: DRUG USE FOR UNKNOWN INDICATION
     Dosage: 81 Milligram
     Route: 048
  16. K-TAB [Concomitant]
     Indication: DRUG USE FOR UNKNOWN INDICATION
     Dosage: 20 Milliequivalents
     Route: 048
  17. FISH OIL [Concomitant]
     Indication: DRUG USE FOR UNKNOWN INDICATION
     Dosage: 1200 Milliequivalents
     Route: 048
  18. PROCHLORPERAZINE MALEATE [Concomitant]
     Indication: NAUSEA
     Dosage: 10 Milligram
     Route: 048
  19. DEXAMETHASONE [Concomitant]
     Indication: DRUG USE FOR UNKNOWN INDICATION
     Dosage: 40 Milligram
     Route: 048
  20. VELCADE [Concomitant]
     Indication: DRUG USE FOR UNKNOWN INDICATION
     Dosage: 1
     Route: 050
  21. VELCADE [Concomitant]
     Route: 065
     Dates: start: 20120329, end: 20120628
  22. VICODIN [Concomitant]
     Indication: PAIN
     Dosage: 5-500mg
     Route: 048
  23. AMBIEN [Concomitant]
     Indication: PAIN
     Dosage: 10 Milligram
     Route: 048
  24. EQL IRON [Concomitant]
     Indication: IRON SUPPLEMENTATION
     Dosage: 650 Milligram
     Route: 048
  25. LORCET [Concomitant]
     Indication: PAIN
     Dosage: 10-650mg
     Route: 048
  26. ASA [Concomitant]
     Indication: DRUG USE FOR UNKNOWN INDICATION
     Route: 065

REACTIONS (3)
  - Peptic ulcer haemorrhage [Recovering/Resolving]
  - Peripheral motor neuropathy [Recovering/Resolving]
  - Peripheral sensory neuropathy [Recovering/Resolving]
